FAERS Safety Report 8773675 (Version 1)
Quarter: 2012Q4

REPORT INFORMATION
  Report Type: 
  Country: CN (occurrence: CN)
  Receive Date: 20120907
  Receipt Date: 20120907
  Transmission Date: 20130627
  Serious: Yes (Other)
  Sender: FDA-Public Use
  Company Number: CN-ROCHE-1111512

PATIENT
  Sex: Female
  Weight: 63.5 kg

DRUGS (1)
  1. TRASTUZUMAB [Suspect]
     Indication: BREAST CANCER
     Route: 042
     Dates: start: 20091010

REACTIONS (3)
  - Cardiac failure [Recovering/Resolving]
  - Pneumonia [Unknown]
  - Pleural effusion [Unknown]
